FAERS Safety Report 5103937-3 (Version None)
Quarter: 2006Q3

REPORT INFORMATION
  Report Type: 
  Country: None (occurrence: None)
  Receive Date: 20060913
  Receipt Date: 20060901
  Transmission Date: 20061208
  Serious: Yes (Death, Other)
  Sender: FDA-Public Use
  Company Number: US-JNJFOC-20060602955

PATIENT
  Sex: Female
  Weight: 153.32 kg

DRUGS (3)
  1. ORTHO EVRA [Suspect]
     Indication: CONTRACEPTION
     Route: 062
  2. INDERAL [Concomitant]
  3. ZOLOFT [Concomitant]

REACTIONS (1)
  - PULMONARY EMBOLISM [None]
